FAERS Safety Report 6351945-7 (Version None)
Quarter: 2009Q3

REPORT INFORMATION
  Report Type: 
  Country: None (occurrence: None)
  Receive Date: 20090912
  Receipt Date: 20090622
  Transmission Date: 20100115
  Serious: No
  Sender: FDA-Public Use
  Company Number: US-ABBOTT-07P-163-0426225-00

PATIENT
  Sex: Female
  Weight: 59.02 kg

DRUGS (4)
  1. HUMIRA [Suspect]
     Indication: COLITIS ULCERATIVE
     Route: 058
     Dates: start: 20070912
  2. HUMIRA [Suspect]
     Route: 058
     Dates: end: 20071121
  3. HUMIRA [Suspect]
     Indication: COLITIS ULCERATIVE
     Route: 048
     Dates: start: 20071121
  4. STEROIDS [Suspect]
     Indication: COLITIS ULCERATIVE
     Route: 048

REACTIONS (6)
  - ABDOMINAL DISTENSION [None]
  - INCORRECT DOSE ADMINISTERED [None]
  - INJECTION SITE HAEMATOMA [None]
  - INJECTION SITE HAEMORRHAGE [None]
  - INJECTION SITE PAIN [None]
  - INJECTION SITE REACTION [None]
